FAERS Safety Report 23533627 (Version 1)
Quarter: 2024Q1

REPORT INFORMATION
  Report Type: Other
  Country: SG (occurrence: SG)
  Receive Date: 20240216
  Receipt Date: 20240216
  Transmission Date: 20240409
  Serious: Yes (Life-Threatening, Hospitalization, Other)
  Sender: FDA-Public Use
  Company Number: SG-Merck Healthcare KGaA-2024007109

PATIENT
  Age: 74 Year
  Sex: Male

DRUGS (3)
  1. METFORMIN [Suspect]
     Active Substance: METFORMIN HYDROCHLORIDE
     Indication: Type 2 diabetes mellitus
     Route: 048
  2. ASPIRIN [Concomitant]
     Active Substance: ASPIRIN
     Indication: Cerebral infarction
  3. CLOPIDOGREL [Concomitant]
     Active Substance: CLOPIDOGREL BISULFATE
     Indication: Cerebral infarction

REACTIONS (5)
  - Euglycaemic diabetic ketoacidosis [Recovering/Resolving]
  - Shock [Recovering/Resolving]
  - Lactic acidosis [Recovering/Resolving]
  - Atrial fibrillation [Unknown]
  - Acute kidney injury [Recovered/Resolved]
